FAERS Safety Report 5584482-8 (Version None)
Quarter: 2008Q1

REPORT INFORMATION
  Report Type: 
  Country: None (occurrence: None)
  Receive Date: 20080108
  Receipt Date: 20071227
  Transmission Date: 20080703
  Serious: Yes (Death, Hospitalization)
  Sender: FDA-Public Use
  Company Number: US-ELI_LILLY_AND_COMPANY-US200709004073

PATIENT
  Sex: Female

DRUGS (1)
  1. FORTEO [Suspect]
     Dosage: UNK, UNK
     Dates: start: 20060901, end: 20070101

REACTIONS (6)
  - BLADDER PAIN [None]
  - DEATH [None]
  - DYSURIA [None]
  - NERVE INJURY [None]
  - PNEUMONIA [None]
  - POST POLIO SYNDROME [None]
